FAERS Safety Report 5281736-X (Version None)
Quarter: 2007Q1

REPORT INFORMATION
  Report Type: 
  Country: None (occurrence: None)
  Receive Date: 20070330
  Receipt Date: 20070323
  Transmission Date: 20070707
  Serious: Yes (Death, Congenital Anomaly)
  Sender: FDA-Public Use
  Company Number: JP-JPN-A200601895

PATIENT

DRUGS (2)
  1. VALTREX [Suspect]
     Dosage: 500MG PER DAY
     Dates: start: 20021105, end: 20060413
  2. RIZABEN [Concomitant]
     Dates: end: 20060324

REACTIONS (4)
  - CHROMOSOME ABNORMALITY [None]
  - DRUG EXPOSURE DURING PREGNANCY [None]
  - INTRA-UTERINE DEATH [None]
  - TRISOMY 22 [None]
